FAERS Safety Report 11922253 (Version 1)
Quarter: 2016Q1

REPORT INFORMATION
  Report Type: Report from Study
  Country: US (occurrence: US)
  Receive Date: 20160115
  Receipt Date: 20160115
  Transmission Date: 20160526
  Serious: Yes (Hospitalization, Other)
  Sender: FDA-Public Use
  Company Number: US-ACTELION-A-NJ2016-129847

PATIENT
  Age: 89 Year
  Sex: Female

DRUGS (1)
  1. MACITENTAN [Suspect]
     Active Substance: MACITENTAN
     Indication: PULMONARY ARTERIAL HYPERTENSION
     Dosage: 10 MG, UNK
     Route: 048
     Dates: start: 20140625

REACTIONS (5)
  - Intervertebral disc protrusion [Unknown]
  - Spinal fracture [Unknown]
  - Hypotension [Unknown]
  - Fall [Unknown]
  - Syncope [Unknown]
